FAERS Safety Report 6185434-X (Version None)
Quarter: 2009Q2

REPORT INFORMATION
  Report Type: 
  Country: None (occurrence: None)
  Receive Date: 20090505
  Receipt Date: 20080404
  Transmission Date: 20091009
  Serious: Yes (Other)
  Sender: FDA-Public Use
  Company Number: 47043

PATIENT
  Age: 55 Year
  Sex: Female
  Weight: 72.5755 kg

DRUGS (2)
  1. OCTREOTIDE ACETATE [Suspect]
     Indication: POST GASTRIC SURGERY SYNDROME
     Dosage: 500MCG QID SC
     Route: 058
     Dates: start: 20080103
  2. SANDOSTATIN LAR [Concomitant]

REACTIONS (1)
  - LABORATORY TEST ABNORMAL [None]
